FAERS Safety Report 16397780 (Version 2)
Quarter: 2019Q2

REPORT INFORMATION
  Report Type: Spontaneous
  Country: JP (occurrence: JP)
  Receive Date: 20190606
  Receipt Date: 20190613
  Transmission Date: 20190711
  Serious: Yes (Other)
  Sender: FDA-Public Use
  Company Number: JP-PFIZER INC-2019225988

PATIENT
  Sex: Male

DRUGS (2)
  1. SPIROPITAN [Concomitant]
     Active Substance: SPIPERONE
     Dosage: UNK
  2. CHAMPIX [Suspect]
     Active Substance: VARENICLINE TARTRATE
     Indication: SMOKING CESSATION THERAPY
     Dosage: UNK
     Route: 048
     Dates: start: 20190513

REACTIONS (3)
  - Schizophrenia [Unknown]
  - Irritability [Unknown]
  - Restlessness [Unknown]
